FAERS Safety Report 5975718-X (Version None)
Quarter: 2008Q4

REPORT INFORMATION
  Report Type: 
  Country: None (occurrence: None)
  Receive Date: 20081202
  Receipt Date: 20081121
  Transmission Date: 20090506
  Serious: Yes (Other)
  Sender: FDA-Public Use
  Company Number: PHHY2008GB29767

PATIENT
  Age: 31 Year
  Sex: Male

DRUGS (2)
  1. CLOZAPINE [Suspect]
     Indication: SCHIZOPHRENIA
     Dosage: 300 MG, QD
     Route: 048
     Dates: start: 20040101, end: 20080723
  2. FERROUS SULFATE TAB [Suspect]
     Indication: ANAEMIA
     Dosage: 200 MG, TID
     Route: 048
     Dates: start: 20080610, end: 20080714

REACTIONS (9)
  - ABDOMINAL PAIN [None]
  - COLOSTOMY [None]
  - FAECAL VOLUME INCREASED [None]
  - LAPAROTOMY [None]
  - NECROTISING COLITIS [None]
  - ORCHITIS [None]
  - PNEUMONIA [None]
  - PYREXIA [None]
  - VOMITING [None]
